FAERS Safety Report 6082965-8 (Version None)
Quarter: 2009Q1

REPORT INFORMATION
  Report Type: 
  Country: None (occurrence: None)
  Receive Date: 20090218
  Receipt Date: 20090216
  Transmission Date: 20090719
  Serious: Yes (Life-Threatening, Other)
  Sender: FDA-Public Use
  Company Number: AU-ROXANE LABORATORIES, INC.-2009-RO-00150RO

PATIENT
  Age: 44 Year
  Sex: Female

DRUGS (8)
  1. ONDANSETRON [Suspect]
     Indication: INDUCTION OF ANAESTHESIA
  2. ONDANSETRON [Suspect]
     Route: 023
  3. VECURONIUM BROMIDE [Suspect]
     Indication: INDUCTION OF ANAESTHESIA
  4. PROPOFOL [Suspect]
     Indication: INDUCTION OF ANAESTHESIA
  5. EPINEPHRINE [Concomitant]
     Indication: ANAPHYLACTIC REACTION
     Route: 042
  6. PROMETHAZINE [Concomitant]
     Indication: ANAPHYLACTIC REACTION
     Route: 042
  7. HYDROCORTISONE [Concomitant]
     Indication: ANAPHYLACTIC REACTION
     Route: 042
  8. FLUIDS [Concomitant]
     Indication: ANAPHYLACTIC REACTION
     Route: 042

REACTIONS (2)
  - ANAPHYLACTIC REACTION [None]
  - SKIN TEST POSITIVE [None]
